FAERS Safety Report 4545370-9 (Version None)
Quarter: 2005Q1

REPORT INFORMATION
  Report Type: 
  Country: None (occurrence: None)
  Receive Date: 20050103
  Receipt Date: 20041213
  Transmission Date: 20050727
  Serious: Yes (Hospitalization, Congenital Anomaly)
  Sender: FDA-Public Use
  Company Number: US_0409105347

PATIENT
  Sex: Male
  Weight: 3 kg

DRUGS (3)
  1. PROZAC WEEKLY [Suspect]
  2. PREVACID [Concomitant]
  3. PRENATAL VITAMINS [Concomitant]

REACTIONS (11)
  - ANXIETY [None]
  - CONGENITAL ANOMALY [None]
  - CONGENITAL HYDRONEPHROSIS [None]
  - DEHYDRATION [None]
  - DRUG EXPOSURE DURING PREGNANCY [None]
  - FEEDING PROBLEM IN NEWBORN [None]
  - HAEMATOCHEZIA [None]
  - JAUNDICE NEONATAL [None]
  - MELAENA [None]
  - NEONATAL APNOEIC ATTACK [None]
  - SOMNOLENCE NEONATAL [None]
